FAERS Safety Report 6050599-7 (Version None)
Quarter: 2009Q1

REPORT INFORMATION
  Report Type: 
  Country: None (occurrence: None)
  Receive Date: 20090121
  Receipt Date: 20090121
  Transmission Date: 20090719
  Serious: Yes (Life-Threatening, Hospitalization, Other)
  Sender: FDA-Public Use
  Company Number: None

PATIENT
  Age: 47 Year
  Sex: Female
  Weight: 106.1417 kg

DRUGS (1)
  1. ENBREL [Suspect]
     Indication: RHEUMATOID ARTHRITIS
     Dosage: 50MG/ML ONCE A WEEK

REACTIONS (4)
  - BRAIN DEATH [None]
  - COMA [None]
  - CONVULSION [None]
  - NERVOUS SYSTEM DISORDER [None]
